FAERS Safety Report 15923002 (Version 1)
Quarter: 2019Q1

REPORT INFORMATION
  Report Type: Spontaneous
  Country: US (occurrence: US)
  Receive Date: 20190205
  Receipt Date: 20190205
  Transmission Date: 20190417
  Serious: Yes (Disabling)
  Sender: FDA-Public Use
  Company Number: None

PATIENT
  Age: 37 Year
  Sex: Female
  Weight: 81.65 kg

DRUGS (4)
  1. ARMOUR THYROID [Concomitant]
     Active Substance: THYROID, PORCINE
  2. WOMEN^S MULTI [Concomitant]
  3. MIRENA [Suspect]
     Active Substance: LEVONORGESTREL
     Dates: start: 20130930, end: 20180130
  4. OMEGA 3 [Concomitant]
     Active Substance: OMEGA-3 FATTY ACIDS

REACTIONS (1)
  - Premature menopause [None]

NARRATIVE: CASE EVENT DATE: 20190204
